FAERS Safety Report 15289573 (Version 3)
Quarter: 2018Q3

REPORT INFORMATION
  Report Type: Spontaneous
  Country: IT (occurrence: IT)
  Receive Date: 20180817
  Receipt Date: 20180904
  Transmission Date: 20181010
  Serious: Yes (Hospitalization)
  Sender: FDA-Public Use
  Company Number: IT-PFIZER INC-2018328584

PATIENT
  Age: 11 Year
  Sex: Female

DRUGS (21)
  1. THIOTEPA. [Suspect]
     Active Substance: THIOTEPA
     Indication: ALLOGENIC BONE MARROW TRANSPLANTATION THERAPY
     Dosage: 275 MG, 1X/DAY
     Route: 042
     Dates: start: 20171111, end: 20171112
  2. FLUCONAZOLE. [Concomitant]
     Active Substance: FLUCONAZOLE
     Dosage: 350 MG, UNK
  3. SANDIMMUN [Concomitant]
     Active Substance: CYCLOSPORINE
     Dosage: 180 MG, UNK
     Dates: start: 20171113
  4. ENDOXAN?BAXTER [Suspect]
     Active Substance: CYCLOPHOSPHAMIDE
     Indication: ALLOGENIC BONE MARROW TRANSPLANTATION THERAPY
     Dosage: 3300 MG, 1X/DAY
     Route: 042
     Dates: start: 20171113, end: 20171114
  5. ANTRA [Concomitant]
     Active Substance: OMEPRAZOLE
     Dosage: 40 MG, UNK
     Route: 042
  6. NYSTATIN. [Concomitant]
     Active Substance: NYSTATIN
     Dosage: 15 ML, UNK
  7. URBASON [Concomitant]
     Active Substance: METHYLPREDNISOLONE
     Dosage: 40 MG, UNK
     Route: 042
     Dates: start: 20171114
  8. URSODEOXYCHOLIC ACID [Concomitant]
     Active Substance: URSODIOL
     Dosage: 600 MG, UNK
  9. UROMITEXAN [Concomitant]
     Active Substance: MESNA
     Dosage: 1100 MG, UNK
     Dates: start: 20171115
  10. TRIMETON [Concomitant]
     Active Substance: CHLORPHENIRAMINE MALEATE
     Dosage: 2 DF, UNK
     Route: 042
  11. ACICLOVIR [Concomitant]
     Active Substance: ACYCLOVIR
     Dosage: 180 MG, UNK
     Route: 042
     Dates: start: 20171114, end: 20171211
  12. TACHIPIRINA [Concomitant]
     Active Substance: ACETAMINOPHEN
     Dosage: 1 G, UNK
     Route: 048
  13. ANTITHYMOCYTE IMMUNOGLOBULIN (RABBIT) [Suspect]
     Active Substance: LAPINE T-LYMPHOCYTE IMMUNE GLOBULIN
     Dosage: 137.5 MG, 1X/DAY
     Route: 042
     Dates: start: 20171113, end: 20171115
  14. EMEND [Concomitant]
     Active Substance: APREPITANT
     Dosage: UNK
     Dates: start: 20171111, end: 20171113
  15. CIPROFLOXACIN. [Concomitant]
     Active Substance: CIPROFLOXACIN
     Dosage: 1000 MG, UNK
     Route: 048
     Dates: start: 20171110, end: 20171115
  16. RANITIDINE. [Concomitant]
     Active Substance: RANITIDINE
     Dosage: 150 MG, UNK
     Route: 042
  17. ALOXI [Concomitant]
     Active Substance: PALONOSETRON HYDROCHLORIDE
     Dosage: UNK
     Dates: start: 20171111
  18. ACICLOVIR [Concomitant]
     Active Substance: ACYCLOVIR
     Dosage: 2400 MG, UNK
     Route: 048
     Dates: start: 20171110, end: 20171113
  19. LASIX [Concomitant]
     Active Substance: FUROSEMIDE
     Dosage: 108 MG, UNK
     Route: 042
     Dates: start: 20171110
  20. METHOTREXATE. [Suspect]
     Active Substance: METHOTREXATE
     Dosage: 15 MG, CYCLIC
     Route: 042
     Dates: start: 20171119, end: 20171124
  21. ENAPREN [Concomitant]
     Active Substance: ENALAPRIL MALEATE
     Dosage: 5 MG, UNK

REACTIONS (3)
  - Mucosal inflammation [Recovered/Resolved]
  - Epistaxis [Recovered/Resolved]
  - Ejection fraction decreased [Recovered/Resolved]

NARRATIVE: CASE EVENT DATE: 20171121
